FAERS Safety Report 9186262 (Version 2)
Quarter: 2013Q2

REPORT INFORMATION
  Report Type: Spontaneous
  Country: FR (occurrence: FR)
  Receive Date: 20130325
  Receipt Date: 20130411
  Transmission Date: 20140414
  Serious: Yes (Other)
  Sender: FDA-Public Use
  Company Number: FR-GLAXOSMITHKLINE-B0874259A

PATIENT
  Age: 30 Year
  Sex: Female

DRUGS (3)
  1. TROBALT [Suspect]
     Indication: PARTIAL SEIZURES
     Route: 048
     Dates: start: 2013
  2. KEPPRA [Concomitant]
     Indication: PARTIAL SEIZURES
     Dosage: 1500MG PER DAY
     Route: 065
  3. LAMICTAL [Concomitant]
     Indication: PARTIAL SEIZURES
     Dosage: 100MG PER DAY
     Route: 065

REACTIONS (3)
  - Suicidal ideation [Recovered/Resolved]
  - Vertigo [Recovered/Resolved]
  - Depressed mood [Recovered/Resolved]
